FAERS Safety Report 5710210-9 (Version None)
Quarter: 2008Q2

REPORT INFORMATION
  Report Type: 
  Country: None (occurrence: None)
  Receive Date: 20080418
  Receipt Date: 20080409
  Transmission Date: 20081010
  Serious: Yes (Other)
  Sender: FDA-Public Use
  Company Number: DE-ABBOTT-08P-062-0442235-00

PATIENT
  Sex: Male

DRUGS (4)
  1. ERGENYL CHRONOSHERE [Suspect]
     Indication: SCHIZOAFFECTIVE DISORDER
     Dosage: INCREASING DOSES UP TO 1000 MG
     Route: 048
     Dates: start: 20080123
  2. QUETIAPINE FUMARATE [Suspect]
     Indication: SCHIZOAFFECTIVE DISORDER
     Route: 048
     Dates: start: 20071213, end: 20080305
  3. BIPERIDEN HYDROCHLORIDE TAB [Suspect]
     Indication: SCHIZOAFFECTIVE DISORDER
     Route: 048
     Dates: start: 20071214, end: 20080302
  4. QUETIAPINE FUMARATE [Concomitant]
     Indication: DRUG USE FOR UNKNOWN INDICATION
     Route: 048

REACTIONS (1)
  - BLOOD CREATINE PHOSPHOKINASE INCREASED [None]
